FAERS Safety Report 12349672 (Version 1)
Quarter: 2016Q2

REPORT INFORMATION
  Report Type: Spontaneous
  Country: US (occurrence: US)
  Receive Date: 20160510
  Receipt Date: 20160510
  Transmission Date: 20160815
  Serious: Yes (Other)
  Sender: FDA-Public Use
  Company Number: US-TEVA-636862USA

PATIENT
  Sex: Female
  Weight: 79.9 kg

DRUGS (1)
  1. ESZOPICLONE. [Suspect]
     Active Substance: ESZOPICLONE
     Indication: INSOMNIA
     Dates: start: 20150209, end: 20160210

REACTIONS (19)
  - Insomnia [Unknown]
  - Disturbance in attention [Unknown]
  - Somnolence [Unknown]
  - Nasopharyngitis [Unknown]
  - Movement disorder [Unknown]
  - Sleep talking [Unknown]
  - Respiratory tract infection [Unknown]
  - Decreased interest [Unknown]
  - Migraine [Not Recovered/Not Resolved]
  - Weight increased [Unknown]
  - Abnormal dreams [Unknown]
  - Withdrawal syndrome [Unknown]
  - Sinusitis [Unknown]
  - Memory impairment [Unknown]
  - Dysgeusia [Unknown]
  - Nausea [Unknown]
  - Fatigue [Unknown]
  - Confusional state [Unknown]
  - Abdominal discomfort [Unknown]

NARRATIVE: CASE EVENT DATE: 2015
